FAERS Safety Report 9885848 (Version 1)
Quarter: 2014Q1

REPORT INFORMATION
  Report Type: Spontaneous
  Country: US (occurrence: None)
  Receive Date: 20140207
  Receipt Date: 20140207
  Transmission Date: 20141002
  Serious: Yes (Hospitalization)
  Sender: FDA-Public Use
  Company Number: None

PATIENT
  Sex: 0

DRUGS (1)
  1. CIMZIA [Suspect]
     Dates: start: 201311

REACTIONS (3)
  - Diverticulitis [None]
  - Gastric polyps [None]
  - Nasal ulcer [None]
